FAERS Safety Report 7273073-9 (Version None)
Quarter: 2011Q1

REPORT INFORMATION
  Report Type: 
  Country: None (occurrence: None)
  Receive Date: 20110203
  Receipt Date: 20101222
  Transmission Date: 20110831
  Serious: Yes (Death, Hospitalization, Other)
  Sender: FDA-Public Use
  Company Number: US-BAXTER-2010BH002626

PATIENT
  Age: 72 Year
  Sex: Female
  Weight: 45 kg

DRUGS (19)
  1. CENTRUM SILVER [Concomitant]
     Indication: PRODUCT USED FOR UNKNOWN INDICATION
     Route: 048
  2. WARFARIN [Concomitant]
     Indication: DEEP VEIN THROMBOSIS
     Route: 065
  3. ESOMEPRAZOLE [Concomitant]
     Indication: PRODUCT USED FOR UNKNOWN INDICATION
     Route: 048
  4. LEVOPHED [Concomitant]
     Indication: HYPOTENSION
     Route: 065
  5. RENAGEL [Concomitant]
     Indication: PRODUCT USED FOR UNKNOWN INDICATION
     Route: 065
  6. COLESTIPOL HYDROCHLORIDE [Concomitant]
     Indication: PRODUCT USED FOR UNKNOWN INDICATION
     Route: 065
  7. VANCOMYCIN [Concomitant]
     Indication: CLOSTRIDIUM DIFFICILE COLITIS
     Route: 048
  8. METRONIDAZOLE [Concomitant]
     Indication: PRODUCT USED FOR UNKNOWN INDICATION
     Route: 065
  9. CYPROHEPTADINE HCL [Concomitant]
     Indication: PRODUCT USED FOR UNKNOWN INDICATION
     Route: 048
  10. NORMAL SALINE [Concomitant]
     Indication: HYPOTENSION
     Route: 042
  11. PERCOCET [Concomitant]
     Indication: PAIN
     Route: 048
  12. CHOLESTYRAMINE [Concomitant]
     Indication: PRODUCT USED FOR UNKNOWN INDICATION
     Route: 048
  13. POTASSIUM [Concomitant]
     Indication: ELECTROLYTE SUBSTITUTION THERAPY
     Route: 042
  14. EPOETIN ALFA [Concomitant]
     Indication: DIALYSIS
     Route: 065
  15. NARCAN [Concomitant]
     Indication: PRODUCT USED FOR UNKNOWN INDICATION
     Route: 065
     Dates: start: 20071225, end: 20071225
  16. HEPARIN SODIUM INJECTION [Suspect]
     Indication: HAEMODIALYSIS
     Route: 065
     Dates: start: 20070901, end: 20070101
  17. ATENOLOL [Concomitant]
     Indication: PRODUCT USED FOR UNKNOWN INDICATION
     Route: 048
  18. CALCIUM CARBONATE [Concomitant]
     Indication: PRODUCT USED FOR UNKNOWN INDICATION
     Route: 048
  19. DIGOXIN [Concomitant]
     Indication: TACHYCARDIA
     Route: 065

REACTIONS (14)
  - SEPSIS [None]
  - CIRCULATORY COLLAPSE [None]
  - HYPOTENSION [None]
  - ATRIAL FIBRILLATION [None]
  - ASTHENIA [None]
  - NAUSEA [None]
  - VOMITING [None]
  - DECREASED APPETITE [None]
  - SUBCLAVIAN VEIN THROMBOSIS [None]
  - GASTRIC INFECTION [None]
  - ABDOMINAL PAIN [None]
  - FLANK PAIN [None]
  - RENAL FAILURE [None]
  - CLOSTRIDIUM DIFFICILE COLITIS [None]
